FAERS Safety Report 8868245 (Version 1)
Quarter: 2012Q4

REPORT INFORMATION
  Report Type: 
  Country: US (occurrence: US)
  Receive Date: 20121026
  Receipt Date: 20121026
  Transmission Date: 20130627
  Serious: No
  Sender: FDA-Public Use
  Company Number: US-AMGEN-USASP2012040123

PATIENT
  Age: 46 Year
  Sex: Female

DRUGS (8)
  1. ENBREL [Suspect]
     Indication: PRODUCT USED FOR UNKNOWN INDICATION
     Dosage: 50 mg, qwk
     Route: 058
  2. PRISTIQ [Concomitant]
     Dosage: 50 mg, UNK
  3. TERBINAFIN [Concomitant]
     Dosage: 250 mg, UNK
  4. METHOTREXATE [Concomitant]
     Dosage: 2.5 mg, UNK
  5. LAMISIL                            /00992601/ [Concomitant]
     Dosage: 250 mg, UNK
  6. LAMOTRIGINE [Concomitant]
     Dosage: 200 mg, UNK
  7. HYDROXYCHLOROQUINE [Concomitant]
     Dosage: 200 mg, UNK
  8. TYLENOL /00020001/ [Concomitant]
     Dosage: 500 mg, UNK

REACTIONS (1)
  - Pain in extremity [Unknown]
